FAERS Safety Report 9859518 (Version 3)
Quarter: 2014Q2

REPORT INFORMATION
  Report Type: Report from Study
  Country: US (occurrence: US)
  Receive Date: 20140131
  Receipt Date: 20140411
  Transmission Date: 20141212
  Serious: Yes (Other)
  Sender: FDA-Public Use
  Company Number: US-ABBVIE-14P-163-1191653-00

PATIENT
  Age: 44 Year
  Sex: Female
  Weight: 86.26 kg

DRUGS (14)
  1. HUMIRA [Suspect]
     Indication: CROHN^S DISEASE
     Route: 058
     Dates: start: 200908, end: 201006
  2. HUMIRA [Suspect]
     Dates: start: 201401
  3. REMICADE [Suspect]
     Indication: PRODUCT USED FOR UNKNOWN INDICATION
  4. ATIVAN [Concomitant]
     Indication: ANXIETY
  5. ATIVAN [Concomitant]
     Indication: INSOMNIA
  6. DICYCLOMINE [Concomitant]
     Indication: GASTROINTESTINAL PAIN
  7. DULERA [Concomitant]
     Indication: BRONCHITIS CHRONIC
  8. DULERA [Concomitant]
     Indication: ASTHMA
  9. VENTOLIN [Concomitant]
     Indication: BRONCHITIS CHRONIC
  10. VENTOLIN [Concomitant]
     Indication: ASTHMA
  11. CITALOPRAM [Concomitant]
     Indication: ANTIDEPRESSANT THERAPY
     Dates: start: 201308
  12. BALSALAZIDE DISODIUM [Concomitant]
     Indication: CROHN^S DISEASE
     Dates: start: 201401
  13. ASACOL [Concomitant]
     Indication: PRODUCT USED FOR UNKNOWN INDICATION
     Dates: end: 201401
  14. WELLBUTRIN [Concomitant]
     Indication: ANTIDEPRESSANT THERAPY
     Dates: end: 201308

REACTIONS (8)
  - Gastrointestinal inflammation [Unknown]
  - Abdominal pain [Not Recovered/Not Resolved]
  - Diarrhoea [Not Recovered/Not Resolved]
  - Crohn^s disease [Unknown]
  - Crohn^s disease [Unknown]
  - Hypothyroidism [Unknown]
  - Injection site pain [Unknown]
  - Injection site pain [Unknown]
